FAERS Safety Report 9922735 (Version 1)
Quarter: 2014Q1

REPORT INFORMATION
  Report Type: Spontaneous
  Country: DE (occurrence: DE)
  Receive Date: 20140225
  Receipt Date: 20140225
  Transmission Date: 20141002
  Serious: Yes (Hospitalization)
  Sender: FDA-Public Use
  Company Number: GXKR2014DE001000

PATIENT
  Sex: 0

DRUGS (6)
  1. PRAMIPEXOLE [Suspect]
  2. DIAZEPAM [Suspect]
     Dosage: DAILY DOSE: 45 GTT DROP(S) EVERY DAY
  3. RISPERDAL [Suspect]
     Dosage: 3 MG, UNK
  4. ZYPREXA [Suspect]
     Dosage: 5 MG, UNK
  5. VALDOXAN [Suspect]
     Dosage: 25 MG, UNK
  6. LEVODOPA [Suspect]

REACTIONS (6)
  - Salivary hypersecretion [Unknown]
  - Fall [Unknown]
  - Movement disorder [Unknown]
  - Speech disorder [Unknown]
  - Eating disorder [Unknown]
  - Sedation [Unknown]
